FAERS Safety Report 7778516-X (Version None)
Quarter: 2011Q3

REPORT INFORMATION
  Report Type: 
  Country: None (occurrence: None)
  Receive Date: 20110926
  Receipt Date: 20110913
  Transmission Date: 20111222
  Serious: Yes (Hospitalization)
  Sender: FDA-Public Use
  Company Number: US-BAYER-2011-037979

PATIENT
  Age: 23 Year
  Sex: Female
  Weight: 108.84 kg

DRUGS (14)
  1. PREDNISONE [Concomitant]
  2. YAZ [Suspect]
     Indication: CONTRACEPTION
     Dosage: UNK
     Route: 048
     Dates: start: 20081001, end: 20090701
  3. DROSPIRENONE AND ETHINYL ESTRADIOL [Suspect]
     Indication: CONTRACEPTION
     Dosage: UNK
     Route: 048
     Dates: start: 20090825, end: 20091017
  4. SERTRALINE HYDROCHLORIDE [Concomitant]
  5. AMOXICILLIN [Concomitant]
  6. MOTRIN [Concomitant]
  7. AMITRIPTYLINE HCL [Concomitant]
  8. ADVIL [Concomitant]
  9. TRAMADOL [Concomitant]
  10. OXYCODONE HCL AND ACETAMINOPHEN [Concomitant]
  11. PROPOXYPHENE NAPSYLATE W/ ACETAMINOPHEN [Concomitant]
  12. ZOLPIDEM [Concomitant]
     Dosage: UNK
     Dates: start: 20081001, end: 20100401
  13. LORAZEPAM [Concomitant]
  14. CHERATUSSIN [AMMONIUM CHLORIDE,DEXTROMETHORPHAN HYDROBROMIDE,SODIU [Concomitant]

REACTIONS (4)
  - PULMONARY EMBOLISM [None]
  - INJURY [None]
  - DEEP VEIN THROMBOSIS [None]
  - PAIN [None]
